FAERS Safety Report 14719487 (Version 5)
Quarter: 2018Q2

REPORT INFORMATION
  Report Type: Spontaneous
  Country: US (occurrence: US)
  Receive Date: 20180405
  Receipt Date: 20180530
  Transmission Date: 20180711
  Serious: Yes (Hospitalization)
  Sender: FDA-Public Use
  Company Number: US-PFIZER INC-2018137587

PATIENT
  Age: 89 Year
  Sex: Male

DRUGS (2)
  1. VIAGRA [Suspect]
     Active Substance: SILDENAFIL CITRATE
     Dosage: 150 MG, WEEKLY (1 TIME P/WEEK)
     Route: 048
  2. VIAGRA [Suspect]
     Active Substance: SILDENAFIL CITRATE
     Indication: ERECTILE DYSFUNCTION
     Dosage: 150 MG, ONCE EVERY 6 DAYS (STARTED 10-15 YEARS AGO)

REACTIONS (4)
  - Visual impairment [Unknown]
  - Drug effect incomplete [Not Recovered/Not Resolved]
  - Hypoacusis [Not Recovered/Not Resolved]
  - Product use issue [Not Recovered/Not Resolved]
